FAERS Safety Report 25106814 (Version 1)
Quarter: 2025Q1

REPORT INFORMATION
  Report Type: Spontaneous
  Country: SE (occurrence: SE)
  Receive Date: 20250321
  Receipt Date: 20250321
  Transmission Date: 20250409
  Serious: No
  Sender: UCB
  Company Number: SE-UCBSA-2024064737

PATIENT
  Age: 78 Year
  Sex: Female

DRUGS (2)
  1. NEUPRO [Suspect]
     Active Substance: ROTIGOTINE
     Indication: Restless legs syndrome
     Route: 062
  2. NEUPRO [Suspect]
     Active Substance: ROTIGOTINE
     Route: 062

REACTIONS (4)
  - Rash [Unknown]
  - Pruritus [Unknown]
  - Overdose [Unknown]
  - Device malfunction [Unknown]
